FAERS Safety Report 8165737-X (Version None)
Quarter: 2012Q1

REPORT INFORMATION
  Report Type: 
  Country: None (occurrence: None)
  Receive Date: 20120227
  Receipt Date: 20110124
  Transmission Date: 20120608
  Serious: No
  Sender: FDA-Public Use
  Company Number: US-MYLANLABS-2011S1000713

PATIENT
  Sex: Male
  Weight: 106.6 kg

DRUGS (3)
  1. AMNESTEEM [Suspect]
     Indication: ACNE
     Dates: start: 20100201
  2. SOTRET [Suspect]
     Indication: ACNE
  3. AMNESTEEM [Suspect]

REACTIONS (3)
  - BLOOD TRIGLYCERIDES INCREASED [None]
  - LOW DENSITY LIPOPROTEIN INCREASED [None]
  - BLOOD CHOLESTEROL INCREASED [None]
